FAERS Safety Report 9263846 (Version 1)
Quarter: 2013Q2

REPORT INFORMATION
  Report Type: Spontaneous
  Country: US (occurrence: US)
  Receive Date: 20130430
  Receipt Date: 20130430
  Transmission Date: 20140414
  Serious: Yes (Death)
  Sender: FDA-Public Use
  Company Number: US-ASTRAZENECA-2013SE29048

PATIENT
  Age: 61 Year
  Sex: Female
  Weight: 115.7 kg

DRUGS (5)
  1. NEXIUM [Suspect]
     Indication: GASTROOESOPHAGEAL REFLUX DISEASE
     Route: 048
     Dates: start: 2001
  2. ASA [Concomitant]
  3. DYSTOLIC [Concomitant]
  4. LASIX [Concomitant]
  5. METOPROLOL [Concomitant]

REACTIONS (5)
  - Death [Fatal]
  - Neck pain [Unknown]
  - Back pain [Unknown]
  - Bone disorder [Unknown]
  - Gastric ulcer [Unknown]
